FAERS Safety Report 20788083 (Version 1)
Quarter: 2022Q2

REPORT INFORMATION
  Report Type: Spontaneous
  Country: US (occurrence: US)
  Receive Date: 20220505
  Receipt Date: 20220505
  Transmission Date: 20220721
  Serious: Yes (Other)
  Sender: FDA-Public Use
  Company Number: US-ORPHANEU-2022001773

PATIENT

DRUGS (5)
  1. CYSTADROPS [Suspect]
     Active Substance: CYSTEAMINE HYDROCHLORIDE
     Indication: Cystinosis
     Dosage: 1 DROP INTO EACH EYE 4 TIMES A DAY
     Route: 047
     Dates: start: 20201207, end: 202202
  2. CYSTAGON [Concomitant]
     Active Substance: CYSTEAMINE BITARTRATE
     Indication: Cystinosis
  3. CYTRA-2 [Concomitant]
     Active Substance: CITRIC ACID MONOHYDRATE\TRISODIUM CITRATE DIHYDRATE
     Indication: Cystinosis
     Dosage: UNK
     Dates: start: 2018
  4. CYTRA-K [Concomitant]
     Active Substance: CITRIC ACID MONOHYDRATE\POTASSIUM CITRATE
     Indication: Cystinosis
     Dosage: UNK
     Dates: start: 2018
  5. CARNITINE [Concomitant]
     Active Substance: CARNITINE
     Indication: Supplementation therapy

REACTIONS (3)
  - Nephrolithiasis [Not Recovered/Not Resolved]
  - Eye irritation [Unknown]
  - Eye pain [Unknown]

NARRATIVE: CASE EVENT DATE: 20220401
